FAERS Safety Report 6713163-X (Version None)
Quarter: 2010Q2

REPORT INFORMATION
  Report Type: 
  Country: None (occurrence: None)
  Receive Date: 20100506
  Receipt Date: 20100423
  Transmission Date: 20101027
  Serious: Yes (Hospitalization)
  Sender: FDA-Public Use
  Company Number: PHHY2010US26419

PATIENT
  Sex: Female
  Weight: 52.55 kg

DRUGS (4)
  1. EXJADE [Suspect]
     Indication: SIDEROBLASTIC ANAEMIA
     Dosage: 1000 MG, DAILY
     Route: 048
     Dates: start: 20091026, end: 20100216
  2. FOLIC ACID [Concomitant]
  3. TIMOPTIC [Concomitant]
  4. FOSAMAX [Concomitant]

REACTIONS (2)
  - BACK PAIN [None]
  - FALL [None]
